FAERS Safety Report 9594922 (Version 2)
Quarter: 2013Q4

REPORT INFORMATION
  Report Type: Spontaneous
  Country: US (occurrence: US)
  Receive Date: 20131004
  Receipt Date: 20131021
  Transmission Date: 20140711
  Serious: Yes (Disabling, Other)
  Sender: FDA-Public Use
  Company Number: US-BAYER-2013-117017

PATIENT
  Age: 45 Year
  Sex: Female

DRUGS (2)
  1. IBUPROFEN [Suspect]
  2. CIPRO [Suspect]
     Indication: GASTROINTESTINAL INFECTION
     Dosage: 500 MG, BID
     Route: 048
     Dates: start: 201210

REACTIONS (24)
  - Terminal state [None]
  - Disability [None]
  - Bedridden [None]
  - Wheelchair user [None]
  - Large intestinal ulcer haemorrhage [None]
  - Vasculitis [None]
  - Vasculitic rash [None]
  - Hepatic function abnormal [None]
  - Abdominal pain upper [None]
  - Malaise [None]
  - Tendon pain [None]
  - Aphagia [None]
  - Vertigo [None]
  - Insomnia [None]
  - Anxiety [None]
  - Headache [None]
  - Trigeminal neuralgia [None]
  - Neuropathy peripheral [None]
  - Neuralgia [None]
  - Fatigue [None]
  - Coordination abnormal [None]
  - Autonomic nervous system imbalance [None]
  - Food allergy [None]
  - Drug hypersensitivity [None]
